FAERS Safety Report 15261773 (Version 1)
Quarter: 2018Q3

REPORT INFORMATION
  Report Type: Spontaneous
  Country: JP (occurrence: JP)
  Receive Date: 20180809
  Receipt Date: 20180809
  Transmission Date: 20181010
  Serious: Yes (Hospitalization)
  Sender: FDA-Public Use
  Company Number: JP-DSJP-DSJ-2018-135856

PATIENT

DRUGS (3)
  1. AMLODIPINE                         /00972402/ [Suspect]
     Active Substance: AMLODIPINE BESYLATE
     Dosage: 5MG/DAY
  2. OLMETEC OD [Suspect]
     Active Substance: OLMESARTAN MEDOXOMIL
     Dosage: 20MG/DAY
  3. ARTIST [Suspect]
     Active Substance: CARVEDILOL
     Dosage: 10MG/DAY

REACTIONS (1)
  - Cushing^s syndrome [Recovering/Resolving]
